FAERS Safety Report 4300013-4 (Version None)
Quarter: 2004Q1

REPORT INFORMATION
  Report Type: 
  Country: None (occurrence: None)
  Receive Date: 20040218
  Receipt Date: 20040204
  Transmission Date: 20041129
  Serious: Yes (Hospitalization)
  Sender: FDA-Public Use
  Company Number: 2004SE00591

PATIENT
  Age: 86 Year
  Sex: Male

DRUGS (4)
  1. MARCAINE [Suspect]
     Indication: LOCAL ANAESTHESIA
     Dosage: 15 MG ONCE IT
     Route: 039
     Dates: start: 20030521, end: 20030521
  2. CARBOCAINE [Suspect]
     Indication: LOCAL ANAESTHESIA
     Dosage: 190 MG ONCE ED
     Route: 008
     Dates: start: 20030521, end: 20030521
  3. SUFENTA [Suspect]
     Indication: POST PROCEDURAL PAIN
     Dates: start: 20030521, end: 20030521
  4. CHIROCAINE [Suspect]
     Indication: POST PROCEDURAL PAIN
     Dates: start: 20030521, end: 20030524

REACTIONS (1)
  - CAUDA EQUINA SYNDROME [None]
